FAERS Safety Report 7292028-1 (Version None)
Quarter: 2011Q1

REPORT INFORMATION
  Report Type: 
  Country: None (occurrence: None)
  Receive Date: 20110215
  Receipt Date: 20110203
  Transmission Date: 20110831
  Serious: Yes (Death, Hospitalization, Other)
  Sender: FDA-Public Use
  Company Number: US-BIOGENIDEC-2011BI004100

PATIENT
  Age: 35 Year
  Sex: Female
  Weight: 86 kg

DRUGS (3)
  1. OXCARBAZEPINE [Concomitant]
  2. TYSABRI [Suspect]
     Indication: MULTIPLE SCLEROSIS
     Route: 042
     Dates: start: 20100524, end: 20100621
  3. DRONABINOL [Concomitant]

REACTIONS (7)
  - MULTIPLE SCLEROSIS RELAPSE [None]
  - VARIANT CREUTZFELDT-JAKOB DISEASE [None]
  - PSYCHOTIC DISORDER [None]
  - COMPLETED SUICIDE [None]
  - SPINAL FRACTURE [None]
  - DEPRESSION [None]
  - CONVULSION [None]
